FAERS Safety Report 20015835 (Version 1)
Quarter: 2021Q4

REPORT INFORMATION
  Report Type: Spontaneous
  Country: US (occurrence: None)
  Receive Date: 20211101
  Receipt Date: 20211101
  Transmission Date: 20220303
  Serious: Yes (Hospitalization)
  Sender: FDA-Public Use
  Company Number: None

PATIENT
  Age: 50 Year
  Sex: Female

DRUGS (1)
  1. TEMOZOLOMIDE [Suspect]
     Active Substance: TEMOZOLOMIDE
     Dosage: OTHER FREQUENCY : OTHER;?
     Route: 048
     Dates: start: 202108

REACTIONS (2)
  - Nephrolithiasis [None]
  - Antibiotic therapy [None]

NARRATIVE: CASE EVENT DATE: 20210930
